FAERS Safety Report 8242846-8 (Version None)
Quarter: 2012Q1

REPORT INFORMATION
  Report Type: 
  Country: None (occurrence: None)
  Receive Date: 20120329
  Receipt Date: 20120320
  Transmission Date: 20120608
  Serious: Yes (Other)
  Sender: FDA-Public Use
  Company Number: CZ-JNJFOC-20120311106

PATIENT
  Sex: Male

DRUGS (2)
  1. XEPLION [Suspect]
     Indication: SCHIZOPHRENIA, PARANOID TYPE
     Dosage: BEFORE NOON
     Route: 030
     Dates: start: 20120314
  2. UNKNOWN MEDICATION [Concomitant]
     Indication: PRODUCT USED FOR UNKNOWN INDICATION
     Route: 048

REACTIONS (8)
  - OEDEMA PERIPHERAL [None]
  - CHILLS [None]
  - ARTHRALGIA [None]
  - APATHY [None]
  - ANXIETY [None]
  - HEADACHE [None]
  - PYREXIA [None]
  - VERTIGO [None]
